FAERS Safety Report 6999777-0 (Version None)
Quarter: 2010Q3

REPORT INFORMATION
  Report Type: 
  Country: None (occurrence: None)
  Receive Date: 20100920
  Receipt Date: 20100403
  Transmission Date: 20110219
  Serious: No
  Sender: FDA-Public Use
  Company Number: US-ASTRAZENECA-2010SE14815

PATIENT
  Age: 17665 Day
  Sex: Female
  Weight: 90.7 kg

DRUGS (5)
  1. SEROQUEL XR [Suspect]
     Indication: INSOMNIA
     Route: 048
     Dates: start: 20100401
  2. CELEBREX [Concomitant]
     Indication: ARTHRITIS
     Route: 048
  3. BACLOFEN [Concomitant]
     Indication: PAIN
     Route: 048
  4. VICODIN [Concomitant]
     Indication: ARTHRITIS
     Route: 048
  5. XANAX [Concomitant]
     Route: 048

REACTIONS (4)
  - DRY MOUTH [None]
  - DYSARTHRIA [None]
  - MUSCLE SPASMS [None]
  - PAIN IN EXTREMITY [None]
